FAERS Safety Report 10160897 (Version 2)
Quarter: 2014Q2

REPORT INFORMATION
  Report Type: Spontaneous
  Country: US (occurrence: US)
  Receive Date: 20140508
  Receipt Date: 20140610
  Transmission Date: 20141212
  Serious: Yes (Death, Other)
  Sender: FDA-Public Use
  Company Number: US-TEVA-479738USA

PATIENT
  Age: 29 Year
  Sex: Female
  Weight: 45.85 kg

DRUGS (8)
  1. ACTIQ [Suspect]
     Indication: BREAKTHROUGH PAIN
     Dates: start: 20140414
  2. LYRICA [Concomitant]
     Indication: PAIN
  3. NORCO [Concomitant]
     Indication: PAIN
     Dosage: 5/325
  4. HYDROCODONE [Concomitant]
     Indication: PAIN
  5. GABAPENTIN [Concomitant]
     Indication: PAIN
  6. MORPHINE [Concomitant]
     Indication: PAIN
  7. METOCLOPRAMIDE [Concomitant]
     Indication: GASTROOESOPHAGEAL REFLUX DISEASE
  8. PRILOSEC [Concomitant]
     Indication: GASTROOESOPHAGEAL REFLUX DISEASE

REACTIONS (2)
  - Death [Fatal]
  - Hospice care [Unknown]
